FAERS Safety Report 11148314 (Version 1)
Quarter: 2015Q2

REPORT INFORMATION
  Report Type: Spontaneous
  Country: TR (occurrence: TR)
  Receive Date: 20150529
  Receipt Date: 20150529
  Transmission Date: 20150821
  Serious: Yes (Other)
  Sender: FDA-Public Use
  Company Number: TR-CIPLA LTD.-2015TR04101

PATIENT

DRUGS (2)
  1. SERTRALINE [Suspect]
     Active Substance: SERTRALINE HYDROCHLORIDE
     Indication: DEPRESSION
     Dosage: 50 MG, UNK
  2. SERTRALINE [Suspect]
     Active Substance: SERTRALINE HYDROCHLORIDE
     Indication: PANIC ATTACK

REACTIONS (4)
  - Obsessive-compulsive disorder [Unknown]
  - Haemoptysis [Unknown]
  - Hypochondriasis [Unknown]
  - Haematuria [Unknown]
